FAERS Safety Report 8736001 (Version 3)
Quarter: 2013Q2

REPORT INFORMATION
  Report Type: Spontaneous
  Country: US (occurrence: US)
  Receive Date: 20120822
  Receipt Date: 20130605
  Transmission Date: 20140414
  Serious: Yes (Other)
  Sender: FDA-Public Use
  Company Number: US-ASTRAZENECA-2012SE57239

PATIENT
  Age: 48 Year
  Sex: Female

DRUGS (3)
  1. SYMBICORT PMDI [Suspect]
     Dosage: UNKNOWN
     Route: 055
  2. SYMBICORT PMDI [Suspect]
     Dosage: 160/4.5 MCG UNKNOWN
     Route: 055
  3. NEXIUM [Suspect]
     Route: 048

REACTIONS (7)
  - Precancerous cells present [Unknown]
  - Asthma [Unknown]
  - Oesophageal spasm [Unknown]
  - Choking [Unknown]
  - Dyspnoea [Unknown]
  - Gastrooesophageal reflux disease [Unknown]
  - Drug dose omission [Unknown]
